FAERS Safety Report 8108173-4 (Version None)
Quarter: 2011Q4

REPORT INFORMATION
  Report Type: 
  Country: None (occurrence: None)
  Receive Date: 20111223
  Receipt Date: 20110714
  Transmission Date: 20120403
  Serious: Yes (Other)
  Sender: FDA-Public Use
  Company Number: PHHY2011US45101

PATIENT
  Age: 25 Year
  Sex: Female

DRUGS (3)
  1. GEODON [Concomitant]
  2. CLOZARIL [Suspect]
     Indication: SCHIZOAFFECTIVE DISORDER
     Dosage: 25 MG QAM AND 225 MG QHS), ORAL
     Route: 048
     Dates: start: 20080820, end: 20110511
  3. ZOLOFT [Concomitant]

REACTIONS (3)
  - NEUTROPENIA [None]
  - AGRANULOCYTOSIS [None]
  - NEUTROPHIL COUNT DECREASED [None]
